FAERS Safety Report 6925638-9 (Version None)
Quarter: 2010Q3

REPORT INFORMATION
  Report Type: 
  Country: None (occurrence: None)
  Receive Date: 20100816
  Receipt Date: 20100816
  Transmission Date: 20110219
  Serious: Yes (Other)
  Sender: FDA-Public Use
  Company Number: GB-JNJFOC-20100803265

PATIENT
  Sex: Female

DRUGS (1)
  1. SPORANOX [Suspect]
     Indication: SKIN DISORDER
     Dosage: (OVER A COURSE OF SIX DAYS)
     Route: 065

REACTIONS (7)
  - DYSPHAGIA [None]
  - EYELID OEDEMA [None]
  - LIP SWELLING [None]
  - OEDEMA GENITAL [None]
  - PHARYNGEAL OEDEMA [None]
  - SWELLING FACE [None]
  - WEIGHT DECREASED [None]
